FAERS Safety Report 4969505-9 (Version None)
Quarter: 2006Q2

REPORT INFORMATION
  Report Type: 
  Country: None (occurrence: None)
  Receive Date: 20060406
  Receipt Date: 20060403
  Transmission Date: 20061013
  Serious: Yes (Hospitalization)
  Sender: FDA-Public Use
  Company Number: A001-002-006832

PATIENT
  Age: 82 Year
  Sex: Male

DRUGS (11)
  1. ARICEPT [Suspect]
     Indication: DEMENTIA
     Dosage: ORAL
     Route: 048
     Dates: start: 20060317
  2. CLOPIDOGREL (CLOPIDOGREL) [Concomitant]
  3. DOCUSATE (DOCUSATE) [Concomitant]
  4. FOLIC ACID [Concomitant]
  5. HYDROCHLOROTHIAZIDE [Concomitant]
  6. LISINOPRIL [Concomitant]
  7. LORATADINE [Concomitant]
  8. MESALAMINE [Concomitant]
  9. METOPROLOL (METOPROLOL) [Concomitant]
  10. TERAZOSIN (TERAZOSIN) [Concomitant]
  11. THIAMINE HCL (THIAMINE) [Concomitant]

REACTIONS (4)
  - DYSTONIA [None]
  - HEADACHE [None]
  - INCORRECT DOSE ADMINISTERED [None]
  - NECK PAIN [None]
